FAERS Safety Report 22145167 (Version 1)
Quarter: 2023Q1

REPORT INFORMATION
  Report Type: Spontaneous
  Country: US (occurrence: US)
  Receive Date: 20230328
  Receipt Date: 20230328
  Transmission Date: 20230418
  Serious: Yes (Other)
  Sender: FDA-Public Use
  Company Number: US-CTI BIOPHARMA-2023US03470

PATIENT

DRUGS (10)
  1. VONJO [Suspect]
     Active Substance: PACRITINIB
     Indication: Myelofibrosis
     Dosage: 100 MG, QD
     Route: 048
     Dates: start: 202302
  2. VONJO [Suspect]
     Active Substance: PACRITINIB
     Dosage: 200 MG, BID
     Route: 048
     Dates: start: 202302
  3. IBUPROFEN [Concomitant]
     Active Substance: IBUPROFEN
     Indication: Bone pain
     Dosage: 400 MG, QID
  4. DULOXETINE [Concomitant]
     Active Substance: DULOXETINE
     Dosage: 60 MG, QD
  5. VITAMIN C [Concomitant]
     Active Substance: ASCORBIC ACID
     Dosage: 1000 MG
  6. VITAMIN D3 [Concomitant]
     Active Substance: CHOLECALCIFEROL
     Dosage: 5000 UNK
  7. VITAMIN K [Concomitant]
     Active Substance: PHYTONADIONE
  8. ISOSORBIDE [Concomitant]
     Active Substance: ISOSORBIDE
     Dosage: 30 MG
  9. CARVEDILOL [Concomitant]
     Active Substance: CARVEDILOL
     Dosage: 12.5 MG
  10. NEXIUM I.V. [Concomitant]
     Active Substance: ESOMEPRAZOLE SODIUM
     Indication: Gastrooesophageal reflux disease
     Dosage: 40 MG

REACTIONS (10)
  - Pulmonary oedema [Not Recovered/Not Resolved]
  - Blister [Unknown]
  - Palpitations [Recovering/Resolving]
  - Gait disturbance [Recovering/Resolving]
  - Erythema [Recovering/Resolving]
  - Constipation [Not Recovered/Not Resolved]
  - Haemoglobin normal [Unknown]
  - Oedema peripheral [Recovering/Resolving]
  - Dyspnoea [Recovering/Resolving]
  - Diarrhoea [Recovered/Resolved]

NARRATIVE: CASE EVENT DATE: 20230301
